FAERS Safety Report 22006228 (Version 4)
Quarter: 2023Q2

REPORT INFORMATION
  Report Type: Report from Study
  Country: US (occurrence: US)
  Receive Date: 20230217
  Receipt Date: 20230515
  Transmission Date: 20230721
  Serious: No
  Sender: FDA-Public Use
  Company Number: US-002147023-NVSC2023US035247

PATIENT
  Sex: Male
  Weight: 100.01 kg

DRUGS (3)
  1. TREPROSTINIL [Suspect]
     Active Substance: TREPROSTINIL
     Indication: Pulmonary arterial hypertension
     Dosage: UNK, CONT (7 NG/KG/MIN)
     Route: 042
     Dates: start: 20230131
  2. TREPROSTINIL [Suspect]
     Active Substance: TREPROSTINIL
     Dosage: UNK, CONT (11.5 NG/KG/MIN)
     Route: 042
     Dates: start: 20230131
  3. XARELTO [Concomitant]
     Active Substance: RIVAROXABAN
     Indication: Product used for unknown indication
     Dosage: UNK
     Route: 065

REACTIONS (4)
  - Catheter site pruritus [Unknown]
  - Infusion site pruritus [Unknown]
  - Gout [Unknown]
  - Device dislocation [Unknown]
